FAERS Safety Report 5606627-3 (Version None)
Quarter: 2008Q1

REPORT INFORMATION
  Report Type: 
  Country: None (occurrence: None)
  Receive Date: 20080129
  Receipt Date: 20080122
  Transmission Date: 20080703
  Serious: Yes (Death, Life-Threatening, Hospitalization)
  Sender: FDA-Public Use
  Company Number: KR-AVENTIS-200810801GDDC

PATIENT
  Age: 55 Year
  Sex: Male

DRUGS (8)
  1. DOCETAXEL [Suspect]
     Route: 042
     Dates: start: 20080104, end: 20080104
  2. CARBOPLATIN [Suspect]
     Dosage: DOSE: AUC 6
     Route: 042
     Dates: start: 20080104, end: 20080104
  3. CODEINE PHOSPHATE [Concomitant]
     Indication: PAIN
     Dosage: DOSE: UNK
     Dates: end: 20080112
  4. MEGESTROL ACETATE [Concomitant]
     Indication: ANOREXIA
     Dosage: DOSE: UNK
  5. N-ACETYLCYSTEINE [Concomitant]
     Dosage: DOSE: UNK
  6. ERDOSTEINE [Concomitant]
     Dosage: DOSE: UNK
  7. MAGNESIUM SULFATE [Concomitant]
     Indication: CONSTIPATION
     Dosage: DOSE: UNK
  8. MORPHINE HCL ELIXIR [Concomitant]
     Indication: PAIN
     Dosage: DOSE: UNK
     Dates: end: 20080112

REACTIONS (3)
  - DYSPNOEA [None]
  - NEUTROPENIA [None]
  - PNEUMONIA [None]
